FAERS Safety Report 20298310 (Version 18)
Quarter: 2024Q2

REPORT INFORMATION
  Report Type: Other
  Country: CO (occurrence: None)
  Receive Date: 20220105
  Receipt Date: 20240523
  Transmission Date: 20240715
  Serious: Yes (Other)
  Sender: FDA-Public Use
  Company Number: CO-ROCHE-2988767

PATIENT
  Age: 56 Year
  Sex: Female

DRUGS (13)
  1. KADCYLA [Suspect]
     Active Substance: ADO-TRASTUZUMAB EMTANSINE
     Indication: Breast cancer
     Route: 042
     Dates: start: 20201026, end: 20220817
  2. KADCYLA [Suspect]
     Active Substance: ADO-TRASTUZUMAB EMTANSINE
     Route: 042
     Dates: start: 20221103
  3. HERCEPTIN [Suspect]
     Active Substance: TRASTUZUMAB
     Indication: Breast cancer
     Dosage: 6 CYCLES
     Route: 041
     Dates: start: 20191025, end: 20200212
  4. HERCEPTIN [Suspect]
     Active Substance: TRASTUZUMAB
     Dosage: 9 CYCLES
     Route: 041
     Dates: start: 20200326, end: 20200929
  5. HERCEPTIN [Suspect]
     Active Substance: TRASTUZUMAB
     Dosage: 2 CYCLES, 58 DAYS.
     Route: 041
     Dates: start: 20190416, end: 20190612
  6. PERJETA [Suspect]
     Active Substance: PERTUZUMAB
     Indication: Breast cancer
     Dosage: 6 CYCLES
     Route: 042
     Dates: start: 20191025, end: 20200212
  7. PERJETA [Suspect]
     Active Substance: PERTUZUMAB
     Dosage: 9 CYCLES
     Route: 042
     Dates: start: 20200326, end: 20200929
  8. DOCETAXEL [Suspect]
     Active Substance: DOCETAXEL\DOCETAXEL ANHYDROUS
     Indication: Breast cancer
     Dosage: 6 CYCLES
     Route: 042
     Dates: start: 20191025, end: 20200212
  9. DOCETAXEL [Suspect]
     Active Substance: DOCETAXEL\DOCETAXEL ANHYDROUS
     Dosage: 2 CYCLES,
     Route: 042
     Dates: start: 20190416, end: 20190612
  10. EXEMESTANE [Suspect]
     Active Substance: EXEMESTANE
     Indication: Breast cancer
     Route: 048
     Dates: start: 20200312
  11. ONDANSETRON [Concomitant]
     Active Substance: ONDANSETRON
     Route: 048
     Dates: start: 20210525
  12. ACETAMINOPHEN [Concomitant]
     Active Substance: ACETAMINOPHEN
     Route: 048
     Dates: start: 20210525
  13. PREGABALIN [Concomitant]
     Active Substance: PREGABALIN
     Route: 048
     Dates: start: 20210525

REACTIONS (6)
  - Hyperbilirubinaemia [Recovered/Resolved]
  - Hyperbilirubinaemia [Recovered/Resolved]
  - Hyperbilirubinaemia [Unknown]
  - Thrombocytopenia [Unknown]
  - Anaemia [Unknown]
  - Calculus urinary [Recovering/Resolving]

NARRATIVE: CASE EVENT DATE: 20210731
